FAERS Safety Report 5472576-7 (Version None)
Quarter: 2007Q4

REPORT INFORMATION
  Report Type: 
  Country: None (occurrence: None)
  Receive Date: 20071001
  Receipt Date: 20060131
  Transmission Date: 20080405
  Serious: No
  Sender: FDA-Public Use
  Company Number: US-ASTRAZENECA-2005UW19170

PATIENT
  Age: 55 Year
  Sex: Female
  Weight: 127 kg

DRUGS (2)
  1. ARIMIDEX [Suspect]
     Indication: BREAST CANCER
     Route: 048
     Dates: start: 20030701
  2. CENTRUM VITAMINS [Concomitant]

REACTIONS (3)
  - AMNESIA [None]
  - FATIGUE [None]
  - WEIGHT INCREASED [None]
